FAERS Safety Report 24832890 (Version 1)
Quarter: 2025Q1

REPORT INFORMATION
  Report Type: Spontaneous
  Country: DE (occurrence: DE)
  Receive Date: 20250111
  Receipt Date: 20250111
  Transmission Date: 20250408
  Serious: Yes (Other)
  Sender: AMGEN
  Company Number: DE-UCBSA-2025000989

PATIENT
  Age: 66 Year
  Sex: Female
  Weight: 86.5 kg

DRUGS (6)
  1. EVENITY [Suspect]
     Active Substance: ROMOSOZUMAB-AQQG
     Indication: Osteoporosis
     Dosage: 210 MILLIGRAM, MONTHLY (QM)
     Route: 065
     Dates: start: 20241101, end: 202412
  2. PREDNISOLONE [Concomitant]
     Active Substance: PREDNISOLONE
     Indication: Pneumocystis jirovecii pneumonia
     Dosage: 5 MILLIGRAM, ONCE DAILY (QD)
     Route: 048
  3. RABEPRAZOLE [Concomitant]
     Active Substance: RABEPRAZOLE
     Indication: Gastritis prophylaxis
     Dosage: 10 MILLIGRAM, ONCE DAILY (QD)
     Route: 048
  4. Calcimed [Concomitant]
     Indication: Osteoporosis
     Dosage: UNK, ONCE DAILY (QD)
     Route: 048
  5. Vigantol [Concomitant]
     Indication: Osteoporosis
     Dosage: 1000 INTERNATIONAL UNIT, ONCE DAILY (QD)
     Route: 048
  6. OMEGA 3 [Concomitant]
     Active Substance: CAPSAICIN
     Indication: Product used for unknown indication
     Dosage: UNK, 3X/DAY (TID)
     Route: 048

REACTIONS (1)
  - Polyarthritis [Not Recovered/Not Resolved]

NARRATIVE: CASE EVENT DATE: 20241101
